FAERS Safety Report 23982739 (Version 1)
Quarter: 2024Q2

REPORT INFORMATION
  Report Type: Spontaneous
  Country: US (occurrence: None)
  Receive Date: 20240617
  Receipt Date: 20240617
  Transmission Date: 20240715
  Serious: Yes (Other)
  Sender: FDA-Public Use
  Company Number: None

PATIENT
  Age: 35 Year
  Sex: Female

DRUGS (6)
  1. ZEPBOUND [Suspect]
     Active Substance: TIRZEPATIDE
     Dosage: OTHER QUANTITY : 1 INJECTION(S);?OTHER FREQUENCY : 1 A WEEK;?
     Route: 061
     Dates: start: 20240524, end: 20240524
  2. LISINOPRIL [Concomitant]
     Active Substance: LISINOPRIL
  3. MAGNESIUM [Concomitant]
     Active Substance: MAGNESIUM
  4. MAGNESIUM [Concomitant]
     Active Substance: MAGNESIUM
  5. VITAMIN C [Concomitant]
     Active Substance: ASCORBIC ACID
  6. OMEGA [Concomitant]

REACTIONS (5)
  - Insomnia [None]
  - Heart rate increased [None]
  - Panic attack [None]
  - Anxiety [None]
  - Hypertension [None]

NARRATIVE: CASE EVENT DATE: 20240524
